FAERS Safety Report 5321633-4 (Version None)
Quarter: 2007Q1

REPORT INFORMATION
  Report Type: 
  Country: None (occurrence: None)
  Receive Date: 20070220
  Receipt Date: 20061221
  Transmission Date: 20070707
  Serious: No
  Sender: FDA-Public Use
  Company Number: TPA2007A00032

PATIENT

DRUGS (1)
  1. ROZEREM [Suspect]
     Dosage: 8 MG

REACTIONS (3)
  - FEELING ABNORMAL [None]
  - FEELING JITTERY [None]
  - RESTLESS LEGS SYNDROME [None]
